FAERS Safety Report 8863043 (Version 3)
Quarter: 2018Q4

REPORT INFORMATION
  Report Type: Spontaneous
  Country: FR (occurrence: FR)
  Receive Date: 20121026
  Receipt Date: 20181113
  Transmission Date: 20190205
  Serious: Yes (Hospitalization, Other)
  Sender: FDA-Public Use
  Company Number: FR-JNJFOC-20121011655

PATIENT
  Age: 20 Year
  Sex: Female

DRUGS (5)
  1. SERESTA [Concomitant]
     Active Substance: OXAZEPAM
     Indication: SUICIDE ATTEMPT
     Dosage: 10 MG TABLETS, 30
     Route: 048
     Dates: start: 20120822, end: 20120822
  2. DOLIPRANE [Suspect]
     Active Substance: ACETAMINOPHEN
     Indication: SUICIDE ATTEMPT
     Dosage: 500 MG TABLETS, 31 SACHETS
     Route: 048
     Dates: start: 20120822, end: 20120822
  3. PRAZEPAM [Suspect]
     Active Substance: PRAZEPAM
     Indication: SUICIDE ATTEMPT
     Route: 048
     Dates: start: 20120822, end: 20120822
  4. DAFALGAN [Suspect]
     Active Substance: ACETAMINOPHEN
     Indication: SUICIDE ATTEMPT
     Dosage: 1 G EACH TABLET, 8 TABLETS
     Route: 048
     Dates: start: 20120822, end: 20120822
  5. IXPRIM [Suspect]
     Active Substance: ACETAMINOPHEN\TRAMADOL HYDROCHLORIDE
     Indication: SUICIDE ATTEMPT
     Route: 048
     Dates: start: 20120822, end: 20120822

REACTIONS (3)
  - Suicide attempt [Recovered/Resolved]
  - Prothrombin time shortened [Recovered/Resolved]
  - Overdose [Recovered/Resolved]

NARRATIVE: CASE EVENT DATE: 20120822
